FAERS Safety Report 9026020 (Version 1)
Quarter: 2013Q1

REPORT INFORMATION
  Report Type: Spontaneous
  Country: US (occurrence: US)
  Receive Date: 20130122
  Receipt Date: 20130122
  Transmission Date: 20140127
  Serious: Yes (Other)
  Sender: FDA-Public Use
  Company Number: US-BAYER-2013-006476

PATIENT
  Sex: Female

DRUGS (1)
  1. CIPRO [Suspect]
     Indication: BRONCHITIS
     Dosage: 500 MG, BID

REACTIONS (4)
  - Abnormal dreams [None]
  - Palpitations [None]
  - Sciatica [None]
  - Vitreous detachment [None]
